FAERS Safety Report 21636744 (Version 1)
Quarter: 2022Q4

REPORT INFORMATION
  Report Type: Report from Study
  Country: US (occurrence: US)
  Receive Date: 20221124
  Receipt Date: 20221124
  Transmission Date: 20230113
  Serious: No
  Sender: FDA-Public Use
  Company Number: US-ABBVIE-22K-163-4467769-00

PATIENT
  Sex: Male

DRUGS (4)
  1. IMBRUVICA [Suspect]
     Active Substance: IBRUTINIB
     Indication: Chronic lymphocytic leukaemia
     Dosage: LAST ADMINISTRATION DATE WAS NOV 2017?420 MILLIGRAM DAILY
     Route: 048
     Dates: start: 20170711
  2. IMBRUVICA [Suspect]
     Active Substance: IBRUTINIB
     Indication: Chronic lymphocytic leukaemia
     Dosage: LAST ADMINISTRATION DATE WAS APR 2018
     Route: 048
     Dates: start: 20170211
  3. IMBRUVICA [Suspect]
     Active Substance: IBRUTINIB
     Indication: Chronic lymphocytic leukaemia
     Dosage: LAST ADMINISTRATION DATE WAS MAY 2018
     Route: 048
     Dates: start: 20180413
  4. IMBRUVICA [Suspect]
     Active Substance: IBRUTINIB
     Indication: Chronic lymphocytic leukaemia
     Dosage: TIME INTERVAL: 0.33333333 DAYS
     Route: 048
     Dates: start: 20180519

REACTIONS (7)
  - Dental cleaning [Unknown]
  - Memory impairment [Unknown]
  - White blood cell count increased [Unknown]
  - Irritability [Unknown]
  - Tooth extraction [Unknown]
  - Anxiety [Unknown]
  - Dry skin [Unknown]
